FAERS Safety Report 7528473-6 (Version None)
Quarter: 2011Q2

REPORT INFORMATION
  Report Type: 
  Country: None (occurrence: None)
  Receive Date: 20110607
  Receipt Date: 20100831
  Transmission Date: 20111010
  Serious: No
  Sender: FDA-Public Use
  Company Number: US-ASTRAZENECA-2010SE42113

PATIENT
  Sex: Female

DRUGS (1)
  1. PRILOSEC OTC [Suspect]
     Dosage: 1 TABLET, 3 /DAY FOR 1 DAY
     Route: 048
     Dates: start: 20100830, end: 20100830

REACTIONS (4)
  - CHEST PAIN [None]
  - DIZZINESS [None]
  - PAIN IN EXTREMITY [None]
  - INCORRECT DRUG ADMINISTRATION DURATION [None]
